FAERS Safety Report 8805173 (Version 2)
Quarter: 2012Q4

REPORT INFORMATION
  Report Type: 
  Country: US (occurrence: US)
  Receive Date: 20120924
  Receipt Date: 20121017
  Transmission Date: 20130627
  Serious: Yes (Death)
  Sender: FDA-Public Use
  Company Number: US-ROCHE-1127037

PATIENT
  Sex: Female

DRUGS (2)
  1. AVASTIN [Suspect]
     Indication: ASTHMA
     Route: 065
  2. HERCEPTIN [Suspect]
     Indication: ASTHMA
     Route: 065

REACTIONS (1)
  - Asthma [Fatal]
